FAERS Safety Report 6143461-2 (Version None)
Quarter: 2009Q2

REPORT INFORMATION
  Report Type: 
  Country: None (occurrence: None)
  Receive Date: 20090403
  Receipt Date: 20090326
  Transmission Date: 20091009
  Serious: Yes (Hospitalization)
  Sender: FDA-Public Use
  Company Number: PHHY2009AU11793

PATIENT
  Age: 68 Year
  Sex: Male

DRUGS (1)
  1. EXELON [Suspect]
     Dosage: 5 MG/CM
     Route: 062

REACTIONS (2)
  - CONDITION AGGRAVATED [None]
  - PARANOIA [None]
